FAERS Safety Report 15094033 (Version 2)
Quarter: 2018Q3

REPORT INFORMATION
  Report Type: Spontaneous
  Country: US (occurrence: US)
  Receive Date: 20180630
  Receipt Date: 20180724
  Transmission Date: 20181010
  Serious: No
  Sender: FDA-Public Use
  Company Number: US-JNJFOC-20180610815

PATIENT
  Age: 77 Year
  Sex: Female
  Weight: 49.9 kg

DRUGS (1)
  1. CHILDRENS TYLENOL [Suspect]
     Active Substance: ACETAMINOPHEN
     Indication: PAIN
     Dosage: ABOUT ^300 MG^ EVERY 4 HOURS
     Route: 065

REACTIONS (1)
  - Drug administered to patient of inappropriate age [Unknown]
